FAERS Safety Report 4869555-7 (Version None)
Quarter: 2005Q4

REPORT INFORMATION
  Report Type: 
  Country: None (occurrence: None)
  Receive Date: 20051227
  Receipt Date: 20051213
  Transmission Date: 20060501
  Serious: Yes (Other)
  Sender: FDA-Public Use
  Company Number: 220474

PATIENT
  Age: 65 Year
  Sex: Female

DRUGS (10)
  1. CATHFLO ACTIVASE [Suspect]
     Indication: CATHETER RELATED COMPLICATION
     Dosage: SEE IMAGE
     Route: 040
     Dates: start: 20050914, end: 20051107
  2. CATHFLO ACTIVASE [Suspect]
     Indication: CATHETER RELATED COMPLICATION
     Dosage: SEE IMAGE
     Route: 040
     Dates: start: 20051109, end: 20051202
  3. CATHFLO ACTIVASE [Suspect]
     Indication: CATHETER RELATED COMPLICATION
     Dosage: SEE IMAGE
     Route: 040
     Dates: start: 20051207, end: 20051207
  4. CATHFLO ACTIVASE [Suspect]
     Indication: CATHETER RELATED COMPLICATION
     Dosage: SEE IMAGE
     Route: 040
     Dates: start: 20051212
  5. WARFARIN SODIUM [Suspect]
     Dosage: QD, ORAL
     Route: 048
  6. CALCIUM CARBONATE (CALCIUM CARBONATE) [Concomitant]
  7. DILANTIN [Concomitant]
  8. ZOCOR [Concomitant]
  9. LOSEC (OMEPRAZOLE) [Concomitant]
  10. CLOBAZAM (CLOBAZAM) [Concomitant]

REACTIONS (7)
  - CONVULSION [None]
  - DRUG INEFFECTIVE [None]
  - HAEMODIALYSIS [None]
  - LOSS OF CONSCIOUSNESS [None]
  - PROCEDURAL COMPLICATION [None]
  - PRURITUS GENERALISED [None]
  - REFUSAL OF TREATMENT BY PATIENT [None]
